FAERS Safety Report 22276627 (Version 1)
Quarter: 2023Q2

REPORT INFORMATION
  Report Type: Spontaneous
  Country: US (occurrence: US)
  Receive Date: 20230503
  Receipt Date: 20230503
  Transmission Date: 20230721
  Serious: Yes (Hospitalization, Other)
  Sender: FDA-Public Use
  Company Number: US-SA-SAC20230502000371

PATIENT
  Sex: Female

DRUGS (1)
  1. AUBAGIO [Suspect]
     Active Substance: TERIFLUNOMIDE
     Indication: Intervertebral disc degeneration
     Dosage: 14 MG, QD
     Route: 048

REACTIONS (2)
  - Guillain-Barre syndrome [Not Recovered/Not Resolved]
  - Product use in unapproved indication [Unknown]
